FAERS Safety Report 8537634-9 (Version None)
Quarter: 2012Q3

REPORT INFORMATION
  Report Type: 
  Country: None (occurrence: None)
  Receive Date: 20120725
  Receipt Date: 20120717
  Transmission Date: 20120928
  Serious: Yes (Hospitalization, Other)
  Sender: FDA-Public Use
  Company Number: US-ASTRAZENECA-2011SE49574

PATIENT
  Age: 74 Year
  Sex: Male

DRUGS (1)
  1. CRESTOR [Suspect]
     Route: 048

REACTIONS (10)
  - CALCULUS URETERIC [None]
  - RIB FRACTURE [None]
  - SPINAL COLUMN INJURY [None]
  - NEPHROLITHIASIS [None]
  - HYDRONEPHROSIS [None]
  - NECK INJURY [None]
  - PAIN [None]
  - ROAD TRAFFIC ACCIDENT [None]
  - CELLULITIS [None]
  - PANCREATIC ENLARGEMENT [None]
